FAERS Safety Report 21628165 (Version 1)
Quarter: 2022Q4

REPORT INFORMATION
  Report Type: Spontaneous
  Country: KR (occurrence: KR)
  Receive Date: 20221122
  Receipt Date: 20221122
  Transmission Date: 20230112
  Serious: Yes (Other)
  Sender: FDA-Public Use
  Company Number: KR-MYLANLABS-2022M1130586

PATIENT
  Age: 57 Year
  Sex: Female

DRUGS (5)
  1. LYRICA [Suspect]
     Active Substance: PREGABALIN
     Indication: Endometrial cancer
     Dosage: 1 DOSAGE FORM, QD
     Route: 065
     Dates: start: 20201118
  2. AMMONIUM CHLORIDE\CHLORPHENIRAMINE MALEATE\DIHYDROCODEINE BITARTRATE\M [Suspect]
     Active Substance: AMMONIUM CHLORIDE\CHLORPHENIRAMINE MALEATE\DIHYDROCODEINE BITARTRATE\METHYLEPHEDRINE HYDROCHLORIDE,
     Indication: Endometrial cancer
     Dosage: 1 DOSAGE FORM, QD
     Route: 065
     Dates: start: 20201118
  3. PREDNISOLONE [Suspect]
     Active Substance: PREDNISOLONE
     Indication: Endometrial cancer
     Dosage: 10 DOSAGE FORM, QD
     Route: 065
     Dates: start: 20201118
  4. CODEINE PHOSPHATE [Suspect]
     Active Substance: CODEINE PHOSPHATE
     Indication: Endometrial cancer
     Dosage: 1 DOSAGE FORM, QD
     Route: 065
     Dates: start: 20201118
  5. ACETAMINOPHEN\TRAMADOL HYDROCHLORIDE [Suspect]
     Active Substance: ACETAMINOPHEN\TRAMADOL HYDROCHLORIDE
     Indication: Endometrial cancer
     Dosage: 1 DOSAGE FORM, QD
     Route: 065
     Dates: start: 20201118

REACTIONS (3)
  - Pulmonary oedema [Unknown]
  - Dyspnoea [Unknown]
  - Off label use [Unknown]

NARRATIVE: CASE EVENT DATE: 20201118
